FAERS Safety Report 7794326-1 (Version None)
Quarter: 2011Q4

REPORT INFORMATION
  Report Type: 
  Country: None (occurrence: None)
  Receive Date: 20111004
  Receipt Date: 20110928
  Transmission Date: 20120403
  Serious: Yes (Hospitalization, Other)
  Sender: FDA-Public Use
  Company Number: FR-PFIZER INC-2011230593

PATIENT
  Age: 43 Year
  Sex: Female

DRUGS (9)
  1. SULFASALAZINE [Suspect]
     Dosage: 1500 MG (3 TABLETS DAILY IN THE 3RD WEEK), 1X/DAY
  2. SPECIAFOLDINE [Concomitant]
     Dosage: UNK
     Dates: start: 20051010
  3. PLAQUENIL [Concomitant]
     Dosage: UNK
     Dates: start: 20110101
  4. SULFASALAZINE [Suspect]
     Dosage: 1000 MG (2 TABLETS DAILY IN THE 2ND WEEK), 1X/DAY
  5. REMICADE [Suspect]
     Dosage: UNK
     Route: 042
     Dates: start: 20110704, end: 20110809
  6. SULFASALAZINE [Suspect]
     Dosage: 4 TABLETS DAILY, 2X/DAY
  7. NOVATREX ^LEDERLE^ [Concomitant]
     Dosage: 5 DF, WEEKLY
     Dates: start: 20051010
  8. SULFASALAZINE [Suspect]
     Indication: ANKYLOSING SPONDYLITIS
     Dosage: 500MG (1 TABLET/DAY IN THE FIRST WEEK), 1X/DAY
     Route: 048
     Dates: start: 20041108
  9. SULFASALAZINE [Suspect]
     Dosage: 3000 MG (6 TABLETS DAILY), 1X/DAY
     Dates: start: 20051010, end: 20110620

REACTIONS (2)
  - CUTANEOUS LUPUS ERYTHEMATOSUS [None]
  - ANKYLOSING SPONDYLITIS [None]
